FAERS Safety Report 5088778-8 (Version None)
Quarter: 2006Q3

REPORT INFORMATION
  Report Type: 
  Country: None (occurrence: None)
  Receive Date: 20060825
  Receipt Date: 20060810
  Transmission Date: 20061208
  Serious: Yes (Other)
  Sender: FDA-Public Use
  Company Number: US-GLAXOSMITHKLINE-A0616361A

PATIENT

DRUGS (3)
  1. ALBUTEROL [Suspect]
     Indication: ASTHMA
  2. ADVAIR DISKUS 100/50 [Suspect]
     Indication: ASTHMA
     Route: 065
  3. NO CONCURRENT MEDICATION [Concomitant]

REACTIONS (2)
  - ASTHMA [None]
  - DRUG ABUSER [None]
